FAERS Safety Report 8409591-7 (Version None)
Quarter: 2012Q2

REPORT INFORMATION
  Report Type: 
  Country: None (occurrence: None)
  Receive Date: 20120531
  Receipt Date: 20120531
  Transmission Date: 20120825
  Serious: No
  Sender: FDA-Public Use
  Company Number: None

PATIENT
  Sex: Female
  Weight: 63.6 kg

DRUGS (1)
  1. ANASTROZOLE [Suspect]
     Indication: BREAST CANCER
     Dosage: 1 MG ONE A DAY ORAL 047
     Route: 048
     Dates: start: 20120305, end: 20120430

REACTIONS (3)
  - PRODUCT SUBSTITUTION ISSUE [None]
  - ARTHRALGIA [None]
  - NECK PAIN [None]
